FAERS Safety Report 4801049-7 (Version None)
Quarter: 2005Q4

REPORT INFORMATION
  Report Type: 
  Country: None (occurrence: None)
  Receive Date: 20051012
  Receipt Date: 20050726
  Transmission Date: 20060501
  Serious: Yes (Hospitalization)
  Sender: FDA-Public Use
  Company Number: 2005106956

PATIENT
  Age: 83 Year
  Sex: Male

DRUGS (2)
  1. SULFASALAZINE [Suspect]
     Indication: RHEUMATOID ARTHRITIS
     Dosage: (500 MG), ORAL
     Route: 048
     Dates: start: 20040501, end: 20040910
  2. ALL OTHER THERAPEUTIC PRODUCTS (ALL OTHER THERAPEUTIC PRODUCTS) [Concomitant]

REACTIONS (5)
  - AGRANULOCYTOSIS [None]
  - CELLULITIS [None]
  - IATROGENIC INJURY [None]
  - PERINEAL ABSCESS [None]
  - SEPTIC SHOCK [None]
